FAERS Safety Report 19620687 (Version 2)
Quarter: 2021Q3

REPORT INFORMATION
  Report Type: Spontaneous
  Country: US (occurrence: US)
  Receive Date: 20210728
  Receipt Date: 20210817
  Transmission Date: 20211014
  Serious: No
  Sender: FDA-Public Use
  Company Number: US-IPSEN BIOPHARMACEUTICALS, INC.-2021-18323

PATIENT
  Age: 46 Year
  Sex: Female

DRUGS (2)
  1. DYSPORT [Suspect]
     Active Substance: ABOBOTULINUMTOXINA
     Indication: OFF LABEL USE
  2. DYSPORT [Suspect]
     Active Substance: ABOBOTULINUMTOXINA
     Indication: SKIN WRINKLING
     Dosage: DOSE NOT REPORTED
     Route: 030
     Dates: start: 20210709, end: 20210709

REACTIONS (4)
  - Eye pain [Recovered/Resolved]
  - Eye swelling [Recovered/Resolved]
  - Off label use [Unknown]
  - Eye oedema [Recovered/Resolved]

NARRATIVE: CASE EVENT DATE: 202107
